FAERS Safety Report 5463996-5 (Version None)
Quarter: 2007Q3

REPORT INFORMATION
  Report Type: 
  Country: None (occurrence: None)
  Receive Date: 20070919
  Receipt Date: 20070917
  Transmission Date: 20080115
  Serious: Yes (Other)
  Sender: FDA-Public Use
  Company Number: 07-239

PATIENT
  Sex: Female

DRUGS (5)
  1. METOPROLOL TARTRATE [Suspect]
     Indication: HYPERTENSION
     Dosage: 1 TAB EVERY 12 HOURS
     Dates: start: 20070625, end: 20070801
  2. HALDOL [Concomitant]
  3. ABILIFY [Concomitant]
  4. ZOLOFT [Concomitant]
  5. SYNTHROID [Concomitant]

REACTIONS (9)
  - CHEST DISCOMFORT [None]
  - COLD SWEAT [None]
  - ERYTHEMA [None]
  - PRURITUS [None]
  - RASH GENERALISED [None]
  - SCAR [None]
  - SKIN EXFOLIATION [None]
  - URTICARIA [None]
  - VOMITING [None]
